FAERS Safety Report 20214273 (Version 1)
Quarter: 2021Q4

REPORT INFORMATION
  Report Type: Spontaneous
  Country: PR (occurrence: PR)
  Receive Date: 20211221
  Receipt Date: 20211221
  Transmission Date: 20220303
  Serious: Yes (Other)
  Sender: FDA-Public Use
  Company Number: PR-MALLINCKRODT-T202105569

PATIENT
  Age: 33 Year
  Sex: Female

DRUGS (1)
  1. H.P. ACTHAR [Suspect]
     Active Substance: CORTICOTROPIN
     Indication: Multiple sclerosis
     Dosage: 80 UNITS, DAILY FOR TWO WEEKS
     Route: 058
     Dates: start: 20140328

REACTIONS (3)
  - Surgery [Unknown]
  - Multiple sclerosis relapse [Unknown]
  - Anaemia [Unknown]

NARRATIVE: CASE EVENT DATE: 20211101
